FAERS Safety Report 16331803 (Version 1)
Quarter: 2019Q2

REPORT INFORMATION
  Report Type: Spontaneous
  Country: US (occurrence: US)
  Receive Date: 20190518
  Receipt Date: 20190518
  Transmission Date: 20190711
  Serious: Yes (Disabling, Other)
  Sender: FDA-Public Use
  Company Number: None

PATIENT
  Age: 62 Year
  Sex: Female
  Weight: 120.6 kg

DRUGS (7)
  1. MULTI VIT. [Concomitant]
  2. SYNTHROID [Concomitant]
     Active Substance: LEVOTHYROXINE SODIUM
  3. COSENTYX [Suspect]
     Active Substance: SECUKINUMAB
     Indication: PSORIASIS
     Dosage: ?          OTHER FREQUENCY:MONTHLY AFTER LOAD;?
     Route: 058
     Dates: start: 20190208, end: 20190503
  4. VIT D [Concomitant]
     Active Substance: VITAMIN D NOS
  5. VIT B [Concomitant]
     Active Substance: VITAMIN B
  6. COSENTYX [Suspect]
     Active Substance: SECUKINUMAB
     Indication: PSORIATIC ARTHROPATHY
     Dosage: ?          OTHER FREQUENCY:MONTHLY AFTER LOAD;?
     Route: 058
     Dates: start: 20190208, end: 20190503
  7. TRAZODONE [Concomitant]
     Active Substance: TRAZODONE HYDROCHLORIDE

REACTIONS (10)
  - Drug ineffective [None]
  - Arthritis [None]
  - Infection [None]
  - Eye infection [None]
  - Lymphadenopathy [None]
  - Parotid gland enlargement [None]
  - Psoriasis [None]
  - Cellulitis [None]
  - Tonsillar inflammation [None]
  - Sinusitis [None]

NARRATIVE: CASE EVENT DATE: 20190301
